FAERS Safety Report 10469760 (Version 6)
Quarter: 2015Q2

REPORT INFORMATION
  Report Type: Report from Study
  Country: KR (occurrence: KR)
  Receive Date: 20140923
  Receipt Date: 20150430
  Transmission Date: 20150821
  Serious: Yes (Hospitalization)
  Sender: FDA-Public Use
  Company Number: KR-ROCHE-1463164

PATIENT
  Age: 56 Year
  Sex: Male
  Weight: 56.2 kg

DRUGS (27)
  1. LORAZEPAM. [Concomitant]
     Active Substance: LORAZEPAM
     Indication: NAUSEA
     Route: 048
     Dates: start: 20140826, end: 20141218
  2. CHLORPHENIRAMINE [Concomitant]
     Active Substance: CHLORPHENIRAMINE
     Indication: INFUSION RELATED REACTION
     Route: 042
     Dates: start: 20140826, end: 20140826
  3. SODIUM CHLORIDE. [Concomitant]
     Active Substance: SODIUM CHLORIDE
     Indication: TOXICITY TO VARIOUS AGENTS
     Route: 042
     Dates: start: 20140826
  4. CISPLATIN. [Suspect]
     Active Substance: CISPLATIN
     Dosage: DOSE REDUCED
     Route: 042
  5. DEXAMETHASONE. [Concomitant]
     Active Substance: DEXAMETHASONE
     Indication: NAUSEA
     Dosage: SELECT IF ONGOING=NO
     Route: 042
     Dates: start: 20140826, end: 20141211
  6. ALMAGEL-F [Concomitant]
     Indication: GASTRITIS
     Route: 048
     Dates: start: 20140826, end: 20141225
  7. FUROSEMIDE. [Concomitant]
     Active Substance: FUROSEMIDE
     Indication: TOXICITY TO VARIOUS AGENTS
     Route: 042
     Dates: start: 20140826, end: 20141211
  8. CISPLATIN. [Suspect]
     Active Substance: CISPLATIN
     Indication: HER-2 POSITIVE GASTRIC CANCER
     Route: 042
     Dates: start: 20140826
  9. HYDROMORPHONE [Concomitant]
     Active Substance: HYDROMORPHONE
     Indication: ABDOMINAL PAIN
     Route: 048
     Dates: start: 20140806, end: 20150301
  10. DEXAMETHASONE. [Concomitant]
     Active Substance: DEXAMETHASONE
     Indication: NAUSEA
     Route: 048
     Dates: start: 20140826, end: 20141218
  11. PALONOSETRON [Concomitant]
     Active Substance: PALONOSETRON
     Indication: NAUSEA
     Route: 042
     Dates: start: 20140826, end: 20141211
  12. MANNITOL 20% [Concomitant]
     Indication: TOXICITY TO VARIOUS AGENTS
     Route: 042
     Dates: start: 20140826, end: 20141211
  13. CYCLOPHOSPHAMIDE. [Concomitant]
     Active Substance: CYCLOPHOSPHAMIDE
     Indication: ABDOMINAL PAIN
     Route: 048
     Dates: start: 20140806
  14. PLACEBO [Suspect]
     Active Substance: UNSPECIFIED INGREDIENT
     Indication: HER-2 POSITIVE GASTRIC CANCER
     Route: 042
     Dates: start: 20140826
  15. CAPECITABINE. [Suspect]
     Active Substance: CAPECITABINE
     Dosage: DOSE REDUCED
     Route: 048
  16. APREPITANT. [Concomitant]
     Active Substance: APREPITANT
     Indication: NAUSEA
     Route: 048
     Dates: start: 20140826, end: 20141213
  17. CHLORHEXIDINE [Concomitant]
     Active Substance: CHLORHEXIDINE
     Indication: MUCOSAL INFLAMMATION
     Route: 048
     Dates: start: 20140826, end: 20150301
  18. POTASSIUM CHLORIDE. [Concomitant]
     Active Substance: POTASSIUM CHLORIDE
     Indication: TOXICITY TO VARIOUS AGENTS
     Route: 042
     Dates: start: 20140826
  19. ACETAMINOFEN [Concomitant]
     Active Substance: ACETAMINOPHEN
     Indication: ABDOMINAL PAIN
     Route: 048
     Dates: start: 20140806
  20. CAPECITABINE. [Suspect]
     Active Substance: CAPECITABINE
     Indication: HER-2 POSITIVE GASTRIC CANCER
     Dosage: MOST RECENT DOSE PRIOR TO SAE RECEIVED ON 27/AUG/2014.
     Route: 048
     Dates: start: 20140826
  21. MAGNESIUM HYDROXIDE. [Concomitant]
     Active Substance: MAGNESIUM HYDROXIDE
     Indication: CONSTIPATION
     Route: 048
     Dates: start: 20140806, end: 20150301
  22. DOMPERIDONE [Concomitant]
     Active Substance: DOMPERIDONE
     Indication: NAUSEA
     Route: 048
     Dates: start: 20140826, end: 20141218
  23. IBUPROFEN. [Concomitant]
     Active Substance: IBUPROFEN
     Indication: ABDOMINAL PAIN
     Route: 048
     Dates: start: 20140806, end: 20150301
  24. DEXTROSE. [Concomitant]
     Active Substance: DEXTROSE
     Indication: TOXICITY TO VARIOUS AGENTS
     Route: 042
     Dates: start: 20140826, end: 20141211
  25. TRASTUZUMAB [Suspect]
     Active Substance: TRASTUZUMAB
     Indication: HER-2 POSITIVE GASTRIC CANCER
     Dosage: LOADING DOSE: 450 MG ?CYCLE 1 ONLY AS PER PROTOCOL
     Route: 042
     Dates: start: 20140826
  26. REBAMIPIDE [Concomitant]
     Active Substance: REBAMIPIDE
     Indication: GASTRITIS
     Route: 048
     Dates: start: 20140806, end: 20150301
  27. CODEINE PHOSPHATE [Concomitant]
     Active Substance: CODEINE PHOSPHATE
     Indication: ABDOMINAL PAIN
     Route: 048
     Dates: start: 20140806

REACTIONS (1)
  - Gastric perforation [Recovered/Resolved]

NARRATIVE: CASE EVENT DATE: 20140828
